FAERS Safety Report 5866601-9 (Version None)
Quarter: 2008Q3

REPORT INFORMATION
  Report Type: 
  Country: None (occurrence: None)
  Receive Date: 20080827
  Receipt Date: 20080811
  Transmission Date: 20090109
  Serious: Yes (Life-Threatening)
  Sender: FDA-Public Use
  Company Number: 000#8#2008-00155

PATIENT
  Age: 72 Year
  Sex: Female

DRUGS (1)
  1. NITROGLYCERIN [Suspect]
     Indication: HYPERTENSIVE CRISIS
     Dosage: SUBLINGUAL
     Route: 060

REACTIONS (2)
  - CIRCULATORY COLLAPSE [None]
  - PULSE ABSENT [None]
